FAERS Safety Report 5661943-4 (Version None)
Quarter: 2008Q1

REPORT INFORMATION
  Report Type: 
  Country: None (occurrence: None)
  Receive Date: 20080310
  Receipt Date: 20080310
  Transmission Date: 20080703
  Serious: No
  Sender: FDA-Public Use
  Company Number: None

PATIENT
  Age: 62 Year
  Sex: Female
  Weight: 72.5755 kg

DRUGS (1)
  1. CIPROFLOXACIN [Suspect]
     Indication: INFECTION
     Dosage: 500MG 2XDAILY PO
     Route: 048
     Dates: start: 20080217, end: 20080227

REACTIONS (2)
  - PHOTOSENSITIVITY REACTION [None]
  - SUNBURN [None]
